FAERS Safety Report 14666476 (Version 1)
Quarter: 2018Q1

REPORT INFORMATION
  Report Type: Spontaneous
  Country: US (occurrence: US)
  Receive Date: 20180320
  Receipt Date: 20180320
  Transmission Date: 20180509
  Serious: Yes (Life-Threatening)
  Sender: FDA-Public Use
  Company Number: None

PATIENT
  Age: 64 Year
  Sex: Male

DRUGS (1)
  1. CAPECITABINE 500MG [Suspect]
     Active Substance: CAPECITABINE
     Indication: COLON CANCER
     Dosage: 500 MG 3 TABS BID X 14 DAYS ORAL
     Route: 048
     Dates: start: 20180220

REACTIONS (3)
  - Hypoaesthesia [None]
  - Fatigue [None]
  - Paraesthesia [None]

NARRATIVE: CASE EVENT DATE: 201803
